FAERS Safety Report 11776908 (Version 1)
Quarter: 2015Q4

REPORT INFORMATION
  Report Type: Spontaneous
  Country: US (occurrence: None)
  Receive Date: 20151124
  Receipt Date: 20151124
  Transmission Date: 20160304
  Serious: Yes (Death)
  Sender: FDA-Public Use
  Company Number: None

PATIENT
  Age: 58 Year
  Sex: Female
  Weight: 54 kg

DRUGS (4)
  1. BEVACIZUMAB (RHUMAB VEGF) [Suspect]
     Active Substance: BEVACIZUMAB
     Dates: end: 20130813
  2. CARBOPLATIN. [Suspect]
     Active Substance: CARBOPLATIN
     Dates: end: 20130813
  3. TAXOL [Suspect]
     Active Substance: PACLITAXEL
     Dates: end: 20130813
  4. ERBITUX [Suspect]
     Active Substance: CETUXIMAB
     Dates: end: 20130813

REACTIONS (11)
  - Pleural effusion [None]
  - Hypokalaemia [None]
  - Hyponatraemia [None]
  - Malignant neoplasm progression [None]
  - Decreased appetite [None]
  - Fatigue [None]
  - Nutritional condition abnormal [None]
  - Lung neoplasm malignant [None]
  - Performance status decreased [None]
  - Dyspnoea [None]
  - Weight decreased [None]

NARRATIVE: CASE EVENT DATE: 20130830
